FAERS Safety Report 25326202 (Version 2)
Quarter: 2025Q3

REPORT INFORMATION
  Report Type: Report from Study
  Country: GB (occurrence: GB)
  Receive Date: 20250516
  Receipt Date: 20250716
  Transmission Date: 20251021
  Serious: Yes (Other)
  Sender: ALEXION PHARMACEUTICALS
  Company Number: GB-AstraZeneca-CH-00869609A

PATIENT
  Age: 76 Year
  Sex: Male

DRUGS (1)
  1. ULTOMIRIS [Suspect]
     Active Substance: RAVULIZUMAB-CWVZ
     Indication: Paroxysmal nocturnal haemoglobinuria
     Dosage: 3300 MILLIGRAM, Q8W

REACTIONS (6)
  - Hepatic cancer [Unknown]
  - Mixed dementia [Unknown]
  - Confusional state [Unknown]
  - Amnesia [Unknown]
  - Hepatic mass [Unknown]
  - Fatigue [Unknown]

NARRATIVE: CASE EVENT DATE: 20250617
